FAERS Safety Report 8473910-6 (Version None)
Quarter: 2012Q2

REPORT INFORMATION
  Report Type: 
  Country: None (occurrence: None)
  Receive Date: 20120628
  Receipt Date: 20120503
  Transmission Date: 20120825
  Serious: Yes (Other)
  Sender: FDA-Public Use
  Company Number: US-MYLANLABS-2012S1002076

PATIENT
  Age: 64 Year
  Sex: Male

DRUGS (7)
  1. TRICOR [Concomitant]
  2. DEPAKOTE [Concomitant]
  3. SINEMET [Concomitant]
     Dosage: 25/100MG
  4. ALPRAZOLAM [Concomitant]
  5. SEROQUEL [Concomitant]
  6. LOVAZA [Concomitant]
  7. CLOZAPINE [Suspect]
     Indication: SCHIZOPHRENIA
     Route: 048

REACTIONS (2)
  - GRANULOCYTOPENIA [None]
  - LEUKOPENIA [None]
